FAERS Safety Report 7380755-7 (Version None)
Quarter: 2011Q1

REPORT INFORMATION
  Report Type: 
  Country: None (occurrence: None)
  Receive Date: 20110329
  Receipt Date: 20101022
  Transmission Date: 20110831
  Serious: Yes (Hospitalization)
  Sender: FDA-Public Use
  Company Number: A0889210A

PATIENT
  Age: 67 Year
  Sex: Male

DRUGS (1)
  1. AVANDIA [Suspect]
     Indication: TYPE 2 DIABETES MELLITUS
     Dosage: 4MG PER DAY
     Route: 048
     Dates: start: 20090901, end: 20100201

REACTIONS (10)
  - GENERAL PHYSICAL HEALTH DETERIORATION [None]
  - ASTHENIA [None]
  - FEAR [None]
  - ECONOMIC PROBLEM [None]
  - ANHEDONIA [None]
  - DECREASED ACTIVITY [None]
  - CARDIOVASCULAR DISORDER [None]
  - INJURY [None]
  - EMOTIONAL DISTRESS [None]
  - PAIN [None]
